FAERS Safety Report 12705965 (Version 1)
Quarter: 2016Q3

REPORT INFORMATION
  Report Type: Spontaneous
  Country: US (occurrence: None)
  Receive Date: 20160831
  Receipt Date: 20160831
  Transmission Date: 20161109
  Serious: Yes (Hospitalization)
  Sender: FDA-Public Use
  Company Number: None

PATIENT
  Age: 76 Year
  Sex: Male
  Weight: 90 kg

DRUGS (13)
  1. ALBUTEROL (VENTOLIN HFA) [Concomitant]
  2. QUETIAPINE. [Concomitant]
     Active Substance: QUETIAPINE
  3. LOSARTAN. [Concomitant]
     Active Substance: LOSARTAN
  4. FEXOFENADINE [Concomitant]
     Active Substance: FEXOFENADINE\FEXOFENADINE HYDROCHLORIDE
  5. INSULIN GLARGINE [Concomitant]
     Active Substance: INSULIN GLARGINE
  6. INSULIN ASPART [Concomitant]
     Active Substance: INSULIN ASPART
  7. AMLOIDPINE [Concomitant]
  8. IBUPROFEN. [Concomitant]
     Active Substance: IBUPROFEN
  9. INVOKANA [Suspect]
     Active Substance: CANAGLIFLOZIN
     Indication: TYPE 2 DIABETES MELLITUS
  10. DONEPEZIL. [Concomitant]
     Active Substance: DONEPEZIL
  11. ACETAMINOPHEN. [Concomitant]
     Active Substance: ACETAMINOPHEN
  12. PRAVASTATIN. [Concomitant]
     Active Substance: PRAVASTATIN
  13. VENLAFAXINE XR [Concomitant]
     Active Substance: VENLAFAXINE HYDROCHLORIDE

REACTIONS (3)
  - Vomiting [None]
  - Diabetic ketoacidosis [None]
  - Nausea [None]

NARRATIVE: CASE EVENT DATE: 20160321
